FAERS Safety Report 7685461-7 (Version None)
Quarter: 2011Q3

REPORT INFORMATION
  Report Type: 
  Country: None (occurrence: None)
  Receive Date: 20110816
  Receipt Date: 20110415
  Transmission Date: 20111222
  Serious: No
  Sender: FDA-Public Use
  Company Number: US-BRISTOL-MYERS SQUIBB COMPANY-15678428

PATIENT
  Sex: Female

DRUGS (1)
  1. GLUCOVANCE [Suspect]

REACTIONS (1)
  - SMALL INTESTINE ULCER [None]
